FAERS Safety Report 6813197-0 (Version None)
Quarter: 2010Q3

REPORT INFORMATION
  Report Type: 
  Country: None (occurrence: None)
  Receive Date: 20100701
  Receipt Date: 20100623
  Transmission Date: 20110219
  Serious: Yes (Other)
  Sender: FDA-Public Use
  Company Number: EC-BAYER-201016138LA

PATIENT
  Age: 26 Year
  Sex: Female

DRUGS (1)
  1. YAZ [Suspect]
     Indication: ORAL CONTRACEPTION
     Route: 048

REACTIONS (3)
  - HEMIPLEGIA [None]
  - MOBILITY DECREASED [None]
  - SPEECH DISORDER [None]
